FAERS Safety Report 7561952-4 (Version None)
Quarter: 2011Q2

REPORT INFORMATION
  Report Type: 
  Country: None (occurrence: None)
  Receive Date: 20110621
  Receipt Date: 20110614
  Transmission Date: 20111010
  Serious: Yes (Death, Life-Threatening, Hospitalization, Other)
  Sender: FDA-Public Use
  Company Number: BG-CELGENEUS-022-C5013-11052218

PATIENT
  Sex: Female
  Weight: 70.9 kg

DRUGS (11)
  1. LENALIDOMIDE [Suspect]
     Dosage: 5 MILLIGRAM
     Route: 048
     Dates: start: 20110427, end: 20110517
  2. FRAGMIN [Concomitant]
     Indication: THROMBOPHLEBITIS
     Route: 058
     Dates: start: 20110427
  3. FURANTHRIL [Concomitant]
     Dosage: 40 MILLIGRAM
     Route: 065
  4. RAMIPRIL [Concomitant]
     Indication: HYPERTENSION
     Dosage: 5 MILLIGRAM
     Route: 048
     Dates: start: 20030101, end: 20110519
  5. TROXENES [Concomitant]
     Indication: THROMBOPHLEBITIS
     Route: 048
     Dates: start: 20110401
  6. ACETIZAL [Concomitant]
     Dosage: 100 MILLIGRAM
     Route: 065
  7. FUREUTHONIL [Concomitant]
     Indication: HYPERTENSION
     Dosage: 40 MILLIGRAM
     Route: 048
     Dates: start: 20100101
  8. DEXAMETHASONE ACETATE [Concomitant]
     Dosage: 100 MILLIGRAM
     Route: 048
     Dates: start: 20100101
  9. SPIRONOLACTONE [Concomitant]
     Indication: HYPERTENSION
     Dosage: 25 MILLIGRAM
     Route: 048
     Dates: start: 20100101
  10. BISOGAMMA [Concomitant]
     Indication: HYPERTENSION
     Dosage: 5 MILLIGRAM
     Route: 048
     Dates: start: 20030101
  11. MILURIT [Concomitant]
     Route: 065
     Dates: end: 20110517

REACTIONS (2)
  - HEPATITIS TOXIC [None]
  - CARDIOPULMONARY FAILURE [None]
